FAERS Safety Report 20891630 (Version 4)
Quarter: 2024Q3

REPORT INFORMATION
  Report Type: Spontaneous
  Country: US (occurrence: US)
  Receive Date: 20220530
  Receipt Date: 20240918
  Transmission Date: 20241017
  Serious: Yes (Hospitalization)
  Sender: PAREXEL
  Company Number: US-AVEO ONCOLOGY-2022-AVEO-US000185

PATIENT

DRUGS (33)
  1. FOTIVDA [Suspect]
     Active Substance: TIVOZANIB HYDROCHLORIDE
     Indication: Renal cell carcinoma
     Dosage: 1.34 MG, TAKE 1 DAILY FOR 21 DAYS WITH 7 DAYS OFF (28-DAY CYCLE)
     Route: 048
     Dates: start: 202109
  2. ACETAMINOPHEN [Concomitant]
     Active Substance: ACETAMINOPHEN
  3. ASPIRIN [Concomitant]
     Active Substance: ASPIRIN
  4. ATORVASTATIN [Concomitant]
     Active Substance: ATORVASTATIN
  5. BEVACIZUMAB [Concomitant]
     Active Substance: BEVACIZUMAB
  6. CEFEPIME [Concomitant]
     Active Substance: CEFEPIME HYDROCHLORIDE
  7. CLOPIDOGREL [Concomitant]
     Active Substance: CLOPIDOGREL BISULFATE
  8. CODEINE [Concomitant]
     Active Substance: CODEINE
  9. ELIQUIS [Concomitant]
     Active Substance: APIXABAN
  10. EPINEPHRINE [Concomitant]
     Active Substance: EPINEPHRINE
  11. FENTANYL [Concomitant]
     Active Substance: FENTANYL\FENTANYL CITRATE
  12. FLUMAZENIL [Concomitant]
     Active Substance: FLUMAZENIL
  13. GUAIFENESIN [Concomitant]
     Active Substance: GUAIFENESIN
  14. ALBUTEROL\IPRATROPIUM [Concomitant]
     Active Substance: ALBUTEROL\IPRATROPIUM
  15. LACTATED RINGERS SOLUTION [Concomitant]
     Active Substance: CALCIUM CHLORIDE\POTASSIUM CHLORIDE\SODIUM CHLORIDE\SODIUM LACTATE
  16. LEVOFLOXACIN LACTATE [Concomitant]
     Active Substance: LEVOFLOXACIN LACTATE
  17. LEVOPHED [Concomitant]
     Active Substance: NOREPINEPHRINE BITARTRATE
  18. LEVOTHYROXINE SODIUM [Concomitant]
     Active Substance: LEVOTHYROXINE SODIUM
  19. LOSARTAN [Concomitant]
     Active Substance: LOSARTAN\LOSARTAN POTASSIUM
  20. MAGNESIUM SULFATE [Concomitant]
     Active Substance: MAGNESIUM SULFATE\MAGNESIUM SULFATE HEPTAHYDRATE
  21. METOPROLOL SUCCINATE [Concomitant]
     Active Substance: METOPROLOL SUCCINATE
  22. MIRTAZAPINE [Concomitant]
     Active Substance: MIRTAZAPINE
  23. MIDAZOLAM HYDROCHLORIDE [Concomitant]
     Active Substance: MIDAZOLAM HYDROCHLORIDE
  24. ZOSYN [Concomitant]
     Active Substance: PIPERACILLIN SODIUM\TAZOBACTAM SODIUM
  25. VITAMIN D [Concomitant]
     Active Substance: VITAMIN D NOS
  26. VANCOMYCIN HYDROCHLORIDE [Concomitant]
     Active Substance: VANCOMYCIN HYDROCHLORIDE
  27. SPIRIVA RESPIMAT [Concomitant]
     Active Substance: TIOTROPIUM BROMIDE
  28. SIMETHICONE (DIMETHICONE) [Concomitant]
     Active Substance: DIMETHICONE
  29. OXYMETAZOLINE HYDROCHLORIDE [Concomitant]
     Active Substance: OXYMETAZOLINE HYDROCHLORIDE
  30. NARCAN [Concomitant]
     Active Substance: NALOXONE HYDROCHLORIDE
  31. MYLANTA MAXIMUM STRENGTH [Concomitant]
     Active Substance: ALUMINUM HYDROXIDE\DIMETHICONE\MAGNESIUM HYDROXIDE
  32. OFLOXACIN [Concomitant]
     Active Substance: OFLOXACIN
  33. POTASSIUM [Concomitant]
     Active Substance: POTASSIUM

REACTIONS (2)
  - Impaired healing [Unknown]
  - Disease progression [Unknown]
